FAERS Safety Report 20134365 (Version 1)
Quarter: 2021Q4

REPORT INFORMATION
  Report Type: Report from Study
  Country: PK (occurrence: PK)
  Receive Date: 20211201
  Receipt Date: 20211201
  Transmission Date: 20220303
  Serious: Yes (Death, Other)
  Sender: FDA-Public Use
  Company Number: PK-NOVARTISPH-NVSC2021PK272538

PATIENT
  Sex: Male
  Weight: 68 kg

DRUGS (1)
  1. AFINITOR [Suspect]
     Active Substance: EVEROLIMUS
     Indication: Renal cell carcinoma
     Dosage: 5 MG, QD
     Route: 048
     Dates: start: 20200703, end: 20210902

REACTIONS (2)
  - COVID-19 [Fatal]
  - Multiple organ dysfunction syndrome [Unknown]
